FAERS Safety Report 10344541 (Version 1)
Quarter: 2014Q3

REPORT INFORMATION
  Report Type: Spontaneous
  Country: GR (occurrence: GR)
  Receive Date: 20140728
  Receipt Date: 20140728
  Transmission Date: 20150326
  Serious: Yes (Other)
  Sender: FDA-Public Use
  Company Number: PHHY2014GR091346

PATIENT
  Age: 57 Year
  Sex: Male

DRUGS (2)
  1. RAMIPRIL. [Concomitant]
     Active Substance: RAMIPRIL
     Indication: HYPERTENSION
  2. EVEROLIMUS [Suspect]
     Active Substance: EVEROLIMUS
     Indication: RENAL CELL CARCINOMA
     Dates: start: 201112

REACTIONS (3)
  - Malignant neoplasm progression [Unknown]
  - Neoplasm recurrence [Unknown]
  - Rash [Unknown]

NARRATIVE: CASE EVENT DATE: 201211
